FAERS Safety Report 8785563 (Version 3)
Quarter: 2013Q1

REPORT INFORMATION
  Report Type: Spontaneous
  Country: US (occurrence: US)
  Receive Date: 20120914
  Receipt Date: 20130125
  Transmission Date: 20140127
  Serious: Yes (Other)
  Sender: FDA-Public Use
  Company Number: US-PFIZER INC-2012226807

PATIENT
  Age: 56 Year
  Sex: Male

DRUGS (1)
  1. LYRICA [Suspect]
     Dosage: 75 MG, 2X/DAY (BID)

REACTIONS (3)
  - Mental impairment [Unknown]
  - Confusional state [Unknown]
  - Influenza [Unknown]
